FAERS Safety Report 6382571-1 (Version None)
Quarter: 2009Q3

REPORT INFORMATION
  Report Type: 
  Country: None (occurrence: None)
  Receive Date: 20090930
  Receipt Date: 20090922
  Transmission Date: 20100115
  Serious: Yes (Death, Hospitalization)
  Sender: FDA-Public Use
  Company Number: A0809430A

PATIENT
  Age: 53 Year
  Sex: Male

DRUGS (2)
  1. AVANDIA [Suspect]
     Route: 065
     Dates: start: 20030122, end: 20070405
  2. AVANDAMET [Suspect]
     Route: 065
     Dates: start: 20041002, end: 20041231

REACTIONS (2)
  - DEATH [None]
  - MYOCARDIAL INFARCTION [None]
